FAERS Safety Report 4824126-3 (Version None)
Quarter: 2005Q4

REPORT INFORMATION
  Report Type: 
  Country: None (occurrence: None)
  Receive Date: 20051108
  Receipt Date: 20051026
  Transmission Date: 20060501
  Serious: Yes (Hospitalization, Other)
  Sender: FDA-Public Use
  Company Number: USA0510111948

PATIENT
  Sex: Male

DRUGS (4)
  1. HUMALOG MIX 75/25 [Suspect]
     Indication: DIABETES MELLITUS
  2. ALLEGRA [Concomitant]
  3. LOTREL [Concomitant]
  4. PREVACID [Concomitant]

REACTIONS (5)
  - DEVICE FAILURE [None]
  - GASTROINTESTINAL INFECTION [None]
  - LYMPHOMA [None]
  - PHARMACEUTICAL PRODUCT COMPLAINT [None]
  - PNEUMONIA [None]
